FAERS Safety Report 8179197 (Version 4)
Quarter: 2013Q3

REPORT INFORMATION
  Report Type: Spontaneous
  Country: US (occurrence: US)
  Receive Date: 20111013
  Receipt Date: 20130812
  Transmission Date: 20140515
  Serious: Yes (Hospitalization)
  Sender: FDA-Public Use
  Company Number: US-B.I. PHARMACEUTICALS,INC./RIDGEFIELD-2011-BP-23832BP

PATIENT
  Age: 81 Year
  Sex: Male

DRUGS (30)
  1. PRADAXA [Suspect]
     Indication: ATRIAL FIBRILLATION
     Dosage: 300 MG
     Dates: start: 201104
  2. CARTIA XL [Concomitant]
  3. ISOSORBIDE [Concomitant]
  4. LANTUS [Concomitant]
  5. FUROSEMIDE [Concomitant]
  6. VITAMIN B6 [Concomitant]
  7. VITAMIN C [Concomitant]
  8. VITAMIN D [Concomitant]
  9. VITAMIN B12 [Concomitant]
  10. BORON [Concomitant]
  11. BILBERRY EXTRACT [Concomitant]
  12. CRANBERRY [Concomitant]
  13. CHROMIUM [Concomitant]
  14. FISH OIL [Concomitant]
  15. RED YEAST RICE [Concomitant]
  16. GINKO [Concomitant]
  17. BUTCHER^S BROOM [Concomitant]
  18. CARNIPURE [Concomitant]
  19. EL CARNITINE [Concomitant]
  20. CO Q 10 [Concomitant]
  21. NO FLUSH NIACIN [Concomitant]
  22. FLORAGLO LUTEIN [Concomitant]
  23. BROMELAIN [Concomitant]
  24. GLUCOSAMIDE AND CHONDROITIN [Concomitant]
  25. CINNAMON [Concomitant]
  26. CALCIUM CITRATE [Concomitant]
  27. MULTAQ [Concomitant]
     Dosage: 800 MG
  28. COMBIGAN [Concomitant]
     Route: 031
  29. ISOSORBIDE DAINITRATE [Concomitant]
     Dosage: 20 MG
  30. TORSEMIDE [Concomitant]
     Dosage: 20 MG

REACTIONS (3)
  - Haemorrhage [Recovered/Resolved]
  - Eye disorder [Recovered/Resolved]
  - Large intestinal polypectomy [Recovered/Resolved]
